FAERS Safety Report 9602935 (Version 2)
Quarter: 2014Q2

REPORT INFORMATION
  Report Type: Report from Study
  Country: US (occurrence: US)
  Receive Date: 20131007
  Receipt Date: 20140616
  Transmission Date: 20141212
  Serious: Yes (Death, Other)
  Sender: FDA-Public Use
  Company Number: US-ROCHE-1283396

PATIENT
  Age: 80 Year
  Sex: Male

DRUGS (10)
  1. AVASTIN [Suspect]
     Indication: BRAIN NEOPLASM MALIGNANT
     Route: 042
     Dates: start: 20130822
  2. AVASTIN [Suspect]
     Route: 042
     Dates: start: 20130906
  3. AVASTIN [Suspect]
     Route: 042
     Dates: start: 20130920, end: 20131003
  4. KYTRIL [Suspect]
     Indication: PRODUCT USED FOR UNKNOWN INDICATION
     Dosage: 2MG/10ML ORAL SOLUTION
     Route: 048
  5. BISOPROLOL [Concomitant]
     Dosage: 2.6 TO 6.25 MG
     Route: 048
  6. CRESTOR [Concomitant]
     Route: 048
  7. FLOMAX (UNITED STATES) [Concomitant]
     Route: 048
  8. INSULIN ASPART [Concomitant]
     Dosage: 100 UNIT/ML SOLUTION
     Route: 058
  9. KEPPRA [Concomitant]
     Route: 048
  10. TEMODAR [Concomitant]
     Route: 048

REACTIONS (5)
  - Death [Fatal]
  - Incoherent [Unknown]
  - Asthenia [Unknown]
  - Ataxia [Unknown]
  - Gait disturbance [Unknown]
